FAERS Safety Report 5763266-1 (Version None)
Quarter: 2008Q2

REPORT INFORMATION
  Report Type: 
  Country: None (occurrence: None)
  Receive Date: 20080604
  Receipt Date: 20080604
  Transmission Date: 20081010
  Serious: Yes (Other)
  Sender: FDA-Public Use
  Company Number: None

PATIENT
  Age: 75 Year
  Sex: Female
  Weight: 62.1428 kg

DRUGS (1)
  1. NIFEDIPINE ER 30 MG P KREMERS URBAN [Suspect]
     Indication: HYPERTENSION
     Dosage: 30 MG ONCE DAILY PO
     Route: 048
     Dates: start: 20080601, end: 20080602

REACTIONS (5)
  - ARTHRALGIA [None]
  - BACK PAIN [None]
  - ERYTHEMA [None]
  - FLUSHING [None]
  - MOBILITY DECREASED [None]
